FAERS Safety Report 23320421 (Version 1)
Quarter: 2023Q4

REPORT INFORMATION
  Report Type: Spontaneous
  Country: US (occurrence: US)
  Receive Date: 20231220
  Receipt Date: 20231220
  Transmission Date: 20240109
  Serious: No
  Sender: FDA-Public Use
  Company Number: US-PFIZER INC-202300444300

PATIENT
  Age: 83 Year
  Sex: Female
  Weight: 64.86 kg

DRUGS (1)
  1. VYNDAMAX [Suspect]
     Active Substance: TAFAMIDIS
     Dosage: 61 MG, 1X/DAY
     Route: 048
     Dates: start: 202306

REACTIONS (3)
  - Asthenia [Unknown]
  - Stress [Unknown]
  - Dyspnoea [Unknown]
